FAERS Safety Report 9840267 (Version 2)
Quarter: 2014Q1

REPORT INFORMATION
  Report Type: Spontaneous
  Country: AR (occurrence: AR)
  Receive Date: 20140124
  Receipt Date: 20140129
  Transmission Date: 20141002
  Serious: Yes (Hospitalization, Other)
  Sender: FDA-Public Use
  Company Number: AR-JNJFOC-20140107544

PATIENT
  Age: 70 Year
  Sex: Male

DRUGS (2)
  1. ZYTIGA [Suspect]
     Indication: PROSTATE CANCER METASTATIC
     Route: 048
     Dates: start: 201309, end: 201401
  2. PREDNISONE [Concomitant]
     Route: 065
     Dates: start: 201401

REACTIONS (2)
  - Lung infiltration [Recovered/Resolved]
  - Oedema [Recovered/Resolved]
